APPROVED DRUG PRODUCT: ISOPTO CETAPRED
Active Ingredient: PREDNISOLONE ACETATE; SULFACETAMIDE SODIUM
Strength: 0.25%;10%
Dosage Form/Route: SUSPENSION;OPHTHALMIC
Application: A087547 | Product #001
Applicant: ALCON LABORATORIES INC
Approved: Approved Prior to Jan 1, 1982 | RLD: No | RS: No | Type: DISCN